FAERS Safety Report 7098305-1 (Version None)
Quarter: 2010Q4

REPORT INFORMATION
  Report Type: 
  Country: None (occurrence: None)
  Receive Date: 20101104
  Receipt Date: 20101021
  Transmission Date: 20110411
  Serious: Yes (Other)
  Sender: FDA-Public Use
  Company Number: DSJ-2010-07251

PATIENT
  Age: 68 Year
  Sex: Female

DRUGS (4)
  1. AMLODIPINE BESYLATE AND OLMESARTAN MEDOXOMIL [Suspect]
     Indication: HYPERTENSION
     Dosage: 40/5 MG (1 IN 1 D), PER ORAL
     Route: 048
     Dates: start: 20090601
  2. TIOTROPIUM BROMIDE (TIOTROPIUM BROMIDE) (TIOTROPIUM BROMIDE) [Concomitant]
  3. FORMOTEROL FUMARATE/BUDESONIDE (FORMOTEROL FUMARATE, BUDESONIDE) (FORM [Concomitant]
  4. SIMVASTATIN [Concomitant]

REACTIONS (5)
  - BLOOD PRESSURE INCREASED [None]
  - DERMATITIS [None]
  - DIZZINESS [None]
  - HYPERAEMIA [None]
  - SYNCOPE [None]
